FAERS Safety Report 9544155 (Version 3)
Quarter: 2013Q4

REPORT INFORMATION
  Report Type: Spontaneous
  Country: US (occurrence: US)
  Receive Date: 20130923
  Receipt Date: 20131009
  Transmission Date: 20140711
  Serious: Yes (Death, Hospitalization)
  Sender: FDA-Public Use
  Company Number: US-PFIZER INC-2013269547

PATIENT
  Age: 51 Year
  Sex: Female
  Weight: 72.6 kg

DRUGS (1)
  1. DEPO-PROVERA [Suspect]
     Indication: MENSTRUAL CYCLE MANAGEMENT
     Dosage: 150 MG, EVERY 3 MONTHS
     Dates: start: 2013, end: 2013

REACTIONS (15)
  - Vaginal haemorrhage [Fatal]
  - Vitamin D decreased [Fatal]
  - Blood calcium decreased [Fatal]
  - Rash [Fatal]
  - Swelling [Fatal]
  - Urticaria [Fatal]
  - Multi-organ failure [Fatal]
  - Dyspnoea [Fatal]
  - Loss of consciousness [Not Recovered/Not Resolved]
  - Pulmonary fibrosis [Not Recovered/Not Resolved]
  - Gait disturbance [Not Recovered/Not Resolved]
  - Malaise [Not Recovered/Not Resolved]
  - Hepatic enzyme increased [Not Recovered/Not Resolved]
  - Renal function test abnormal [Not Recovered/Not Resolved]
  - Thrombosis [Not Recovered/Not Resolved]
